FAERS Safety Report 6186177-9 (Version None)
Quarter: 2009Q2

REPORT INFORMATION
  Report Type: 
  Country: None (occurrence: None)
  Receive Date: 20090511
  Receipt Date: 20090429
  Transmission Date: 20091009
  Serious: Yes (Other)
  Sender: FDA-Public Use
  Company Number: US-PFIZER INC-2009205350

PATIENT
  Sex: Female

DRUGS (3)
  1. GLIPIZIDE [Suspect]
     Indication: TYPE 2 DIABETES MELLITUS
  2. EPOGEN [Suspect]
     Indication: ANAEMIA
     Dosage: UNK
     Dates: start: 20080101
  3. INSULIN [Concomitant]

REACTIONS (1)
  - APLASIA PURE RED CELL [None]
